FAERS Safety Report 13069567 (Version 1)
Quarter: 2016Q4

REPORT INFORMATION
  Report Type: Spontaneous
  Country: ES (occurrence: ES)
  Receive Date: 20161228
  Receipt Date: 20161228
  Transmission Date: 20170207
  Serious: Yes (Other)
  Sender: FDA-Public Use
  Company Number: ES-TEVA-723955ISR

PATIENT
  Age: 75 Year
  Sex: Male

DRUGS (5)
  1. PARACETAMOL [Concomitant]
     Active Substance: ACETAMINOPHEN
  2. CIPROFLOXACIN. [Suspect]
     Active Substance: CIPROFLOXACIN
     Indication: PRODUCT USED FOR UNKNOWN INDICATION
     Route: 048
  3. PANTOPRAZOLE [Concomitant]
     Active Substance: PANTOPRAZOLE SODIUM
  4. ALLOPURINOL. [Concomitant]
     Active Substance: ALLOPURINOL
  5. ENANTYUM [Concomitant]
     Active Substance: DEXKETOPROFEN TROMETAMOL

REACTIONS (4)
  - Dizziness [Recovered/Resolved]
  - Tremor [Recovered/Resolved]
  - Abasia [Recovered/Resolved]
  - Myoclonus [Recovered/Resolved]
